FAERS Safety Report 6544874-7 (Version None)
Quarter: 2010Q1

REPORT INFORMATION
  Report Type: 
  Country: None (occurrence: None)
  Receive Date: 20100121
  Receipt Date: 20100112
  Transmission Date: 20100710
  Serious: Yes (Hospitalization)
  Sender: FDA-Public Use
  Company Number: US-ELI_LILLY_AND_COMPANY-US201001002459

PATIENT
  Age: 43 Year
  Sex: Female

DRUGS (3)
  1. CYMBALTA [Suspect]
     Dosage: 30 MG, UNK
  2. CYMBALTA [Suspect]
     Dosage: 1 D/F, UNK
  3. CYMBALTA [Suspect]
     Dosage: 1 D/F, UNK

REACTIONS (3)
  - DRUG WITHDRAWAL SYNDROME [None]
  - PALPITATIONS [None]
  - SUICIDAL IDEATION [None]
